FAERS Safety Report 5480039-8 (Version None)
Quarter: 2007Q4

REPORT INFORMATION
  Report Type: 
  Country: None (occurrence: None)
  Receive Date: 20071008
  Receipt Date: 20070928
  Transmission Date: 20080405
  Serious: Yes (Other)
  Sender: FDA-Public Use
  Company Number: GB-PFIZER INC-2007075715

PATIENT
  Sex: Female

DRUGS (10)
  1. LIPITOR [Suspect]
     Route: 048
  2. GLYCERYL TRINITRATE [Concomitant]
  3. ACETYLSALICYLIC ACID [Concomitant]
  4. OMEPRAZOLE [Concomitant]
  5. SENNA [Concomitant]
  6. TRAMADOL HCL [Concomitant]
  7. QUININE SULFATE [Concomitant]
  8. TEMAZEPAM [Concomitant]
  9. CO-AMILOFRUSE [Concomitant]
  10. EZETIMIBE [Concomitant]

REACTIONS (2)
  - DYSPHAGIA [None]
  - OESOPHAGEAL OPERATION [None]
